FAERS Safety Report 23398913 (Version 1)
Quarter: 2024Q1

REPORT INFORMATION
  Report Type: Report from Study
  Country: DE (occurrence: DE)
  Receive Date: 20240112
  Receipt Date: 20240112
  Transmission Date: 20240409
  Serious: Yes (Other)
  Sender: FDA-Public Use
  Company Number: DE-WW-2023-0572

PATIENT
  Age: 52 Year
  Sex: Female
  Weight: 85 kg

DRUGS (7)
  1. ESZOPICLONE [Suspect]
     Active Substance: ESZOPICLONE
     Indication: Insomnia
     Dosage: 3 MG
     Route: 065
     Dates: end: 20231207
  2. RITALIN [Concomitant]
     Active Substance: METHYLPHENIDATE HYDROCHLORIDE
     Indication: Attention deficit hyperactivity disorder
     Dosage: 40 MG, QD
     Route: 048
  3. Relvar Ellipta 92/22 [Concomitant]
     Indication: Asthma
     Route: 055
  4. Novalgin [Concomitant]
     Indication: Pain
     Dosage: 500 MG
     Route: 048
  5. LEVOTHYROXINE SODIUM [Concomitant]
     Active Substance: LEVOTHYROXINE SODIUM
     Indication: Hypothyroidism
     Dosage: 200 MCG, QD
     Route: 048
  6. TAMOXIFEN [Concomitant]
     Active Substance: TAMOXIFEN
     Indication: Breast cancer
     Route: 048
     Dates: end: 202210
  7. MELPERONE [Concomitant]
     Active Substance: MELPERONE

REACTIONS (1)
  - Angioedema [Recovered/Resolved]

NARRATIVE: CASE EVENT DATE: 20231207
